FAERS Safety Report 5228363-8 (Version None)
Quarter: 2007Q1

REPORT INFORMATION
  Report Type: 
  Country: None (occurrence: None)
  Receive Date: 20070205
  Receipt Date: 20070125
  Transmission Date: 20070707
  Serious: Yes (Other)
  Sender: FDA-Public Use
  Company Number: GB-JNJFOC-20061103685

PATIENT
  Age: 26 Year
  Sex: Male

DRUGS (8)
  1. RISPERDAL [Suspect]
     Dosage: 4-5 MG
     Route: 048
  2. RISPERDAL [Suspect]
     Indication: DRUG USE FOR UNKNOWN INDICATION
     Route: 048
  3. RISPERDAL CONSTA [Suspect]
     Route: 030
  4. RISPERDAL CONSTA [Suspect]
     Route: 030
  5. RISPERDAL CONSTA [Suspect]
     Indication: DRUG USE FOR UNKNOWN INDICATION
     Route: 030
  6. OLANZAPINE [Concomitant]
     Route: 065
  7. VALPROATE SODIUM [Concomitant]
     Dosage: FOR THREE DAYS
  8. VALPROATE SODIUM [Concomitant]

REACTIONS (3)
  - ABNORMAL BEHAVIOUR [None]
  - PSYCHOTIC DISORDER [None]
  - SUICIDAL IDEATION [None]
